FAERS Safety Report 21150072 (Version 8)
Quarter: 2023Q2

REPORT INFORMATION
  Report Type: Spontaneous
  Country: US (occurrence: US)
  Receive Date: 20220729
  Receipt Date: 20230503
  Transmission Date: 20230721
  Serious: Yes (Other)
  Sender: FDA-Public Use
  Company Number: US-PFIZER INC-PV202200030269

PATIENT
  Age: 78 Year
  Sex: Female

DRUGS (2)
  1. EUCRISA [Suspect]
     Active Substance: CRISABOROLE
     Dosage: UNK (APPLY TO AFFECTED AREA 1-2 TIMES)
  2. EUCRISA [Suspect]
     Active Substance: CRISABOROLE
     Dosage: UNK, DAILY (1-2 TIMES DAILY)
     Route: 061

REACTIONS (3)
  - Dementia [Not Recovered/Not Resolved]
  - Off label use [Unknown]
  - Skin exfoliation [Not Recovered/Not Resolved]
